FAERS Safety Report 7298001-1 (Version None)
Quarter: 2011Q1

REPORT INFORMATION
  Report Type: 
  Country: None (occurrence: None)
  Receive Date: 20110217
  Receipt Date: 20110209
  Transmission Date: 20110831
  Serious: No
  Sender: FDA-Public Use
  Company Number: US-PFIZER INC-2010115950

PATIENT
  Sex: Female

DRUGS (5)
  1. LEXAPRO [Suspect]
     Indication: ANXIETY
     Dosage: UNK
  2. ZOLOFT [Suspect]
     Dosage: UNK
  3. PRISTIQ [Suspect]
     Indication: ANXIETY
     Dosage: 50 MG, EACH MORNING
     Dates: start: 20100101
  4. ASCORBIC ACID [Concomitant]
  5. PRISTIQ [Suspect]
     Indication: INFLAMMATION

REACTIONS (7)
  - HEADACHE [None]
  - NAUSEA [None]
  - HYPERSENSITIVITY [None]
  - WRONG TECHNIQUE IN DRUG USAGE PROCESS [None]
  - DRUG INEFFECTIVE [None]
  - CONSTIPATION [None]
  - THERAPEUTIC RESPONSE UNEXPECTED [None]
